FAERS Safety Report 25903308 (Version 2)
Quarter: 2025Q4

REPORT INFORMATION
  Report Type: Spontaneous
  Country: US (occurrence: US)
  Receive Date: 20251009
  Receipt Date: 20251128
  Transmission Date: 20260118
  Serious: No
  Sender: TEVA
  Company Number: US-TEVA-VS-3378834

PATIENT
  Age: 48 Year
  Sex: Female

DRUGS (1)
  1. UZEDY [Suspect]
     Active Substance: RISPERIDONE
     Indication: Schizoaffective disorder bipolar type
     Dosage: MONTHLY, LAST DOSE ADMINISTERED DATE: 2025-09-03
     Route: 058
     Dates: start: 20250619

REACTIONS (3)
  - Injection site mass [Not Recovered/Not Resolved]
  - Cough [Unknown]
  - Product distribution issue [Unknown]

NARRATIVE: CASE EVENT DATE: 20250101
